FAERS Safety Report 8206959-9 (Version None)
Quarter: 2012Q1

REPORT INFORMATION
  Report Type: 
  Country: None (occurrence: None)
  Receive Date: 20120227
  Receipt Date: 20120123
  Transmission Date: 20120608
  Serious: No
  Sender: FDA-Public Use
  Company Number: 343545

PATIENT
  Age: 38 Year
  Sex: Female

DRUGS (1)
  1. VICTOZA [Suspect]
     Indication: TYPE 2 DIABETES MELLITUS
     Dosage: 0.6 MG, QD, SUBCUTANEOUS
     Route: 058
     Dates: start: 20120116

REACTIONS (4)
  - MIGRAINE [None]
  - TREMOR [None]
  - BLOOD GLUCOSE DECREASED [None]
  - FEELING JITTERY [None]
